FAERS Safety Report 25475993 (Version 2)
Quarter: 2025Q3

REPORT INFORMATION
  Report Type: Report from Study
  Country: US (occurrence: US)
  Receive Date: 20250625
  Receipt Date: 20250701
  Transmission Date: 20251020
  Serious: No
  Sender: ABBVIE
  Company Number: US-ABBVIE-6337950

PATIENT
  Sex: Female

DRUGS (3)
  1. HUMIRA [Suspect]
     Active Substance: ADALIMUMAB
     Indication: Uveitis
     Dosage: CITRATE FREE.
     Route: 058
     Dates: start: 20210629
  2. HUMIRA [Suspect]
     Active Substance: ADALIMUMAB
     Indication: Birdshot chorioretinopathy
  3. MYCOPHENOLIC ACID [Concomitant]
     Active Substance: MYCOPHENOLIC ACID
     Indication: Uveitis

REACTIONS (1)
  - Therapeutic product effect incomplete [Unknown]
